FAERS Safety Report 16004956 (Version 4)
Quarter: 2020Q1

REPORT INFORMATION
  Report Type: Report from Study
  Country: FR (occurrence: FR)
  Receive Date: 20190226
  Receipt Date: 20200123
  Transmission Date: 20200409
  Serious: Yes (Other)
  Sender: FDA-Public Use
  Company Number: PHHY2019FR042437

PATIENT
  Age: 58 Year
  Sex: Female

DRUGS (11)
  1. OPTIVE [Concomitant]
     Active Substance: CARBOXYMETHYLCELLULOSE SODIUM\GLYCERIN
     Dosage: 1 DRP, UNK
     Route: 065
     Dates: start: 20180201
  2. DOSTINEX [Concomitant]
     Active Substance: CABERGOLINE
     Indication: HYPERPROLACTINAEMIA
     Dosage: 0.5 MG, UNK
     Route: 048
     Dates: start: 20150401, end: 20181003
  3. TRUSOPT [Concomitant]
     Active Substance: DORZOLAMIDE HYDROCHLORIDE
     Indication: GLAUCOMA
     Dosage: 1 DF, UNK
     Route: 065
     Dates: start: 2014
  4. GANFORT [Concomitant]
     Active Substance: BIMATOPROST\TIMOLOL
     Indication: GLAUCOMA
     Dosage: 1 DRP, UNK
     Route: 065
     Dates: start: 20180201
  5. HYDROCORTISONE. [Concomitant]
     Active Substance: HYDROCORTISONE
     Indication: ADRENAL INSUFFICIENCY
     Dosage: 20 MG, UNK
     Route: 048
     Dates: start: 20150901
  6. STAGID [Concomitant]
     Active Substance: METFORMIN PAMOATE
     Indication: DIABETES MELLITUS
     Dosage: 700 MG, UNK
     Route: 048
     Dates: start: 201701
  7. DIPROSONE [Concomitant]
     Active Substance: BETAMETHASONE DIPROPIONATE
     Indication: PARONYCHIA
  8. SIGNIFOR LAR [Suspect]
     Active Substance: PASIREOTIDE PAMOATE
     Indication: ACROMEGALY
     Dosage: 40 MG, Q4W
     Route: 065
     Dates: start: 20170810
  9. DUOTRAV [Concomitant]
     Active Substance: TIMOLOL MALEATE\TRAVOPROST
     Indication: GLAUCOMA
     Dosage: 1 DF, UNK
     Route: 065
     Dates: start: 2014
  10. OPTIVE [Concomitant]
     Active Substance: CARBOXYMETHYLCELLULOSE SODIUM\GLYCERIN
     Indication: GLAUCOMA
     Dosage: 1 DF, UNK
     Route: 065
     Dates: start: 2014
  11. DIPROSONE [Concomitant]
     Active Substance: BETAMETHASONE DIPROPIONATE
     Indication: HYPERKERATOSIS
     Dosage: 1 DF, UNK
     Route: 061
     Dates: start: 2017

REACTIONS (7)
  - Blood osmolarity increased [Unknown]
  - Punctate keratitis [Recovered/Resolved]
  - Blood creatinine decreased [Unknown]
  - Diabetes mellitus [Not Recovered/Not Resolved]
  - Blood calcium increased [Unknown]
  - Meibomianitis [Recovered/Resolved]
  - Sinus bradycardia [Recovered/Resolved]

NARRATIVE: CASE EVENT DATE: 20180123
